FAERS Safety Report 11071887 (Version 1)
Quarter: 2015Q2

REPORT INFORMATION
  Report Type: Spontaneous
  Country: FR (occurrence: None)
  Receive Date: 20150424
  Receipt Date: 20150424
  Transmission Date: 20150821
  Serious: Yes (Hospitalization)
  Sender: FDA-Public Use
  Company Number: 2830394

PATIENT
  Age: 68 Year
  Sex: Male

DRUGS (2)
  1. LITAK [Suspect]
     Active Substance: CLADRIBINE
     Indication: HAIRY CELL LEUKAEMIA
     Dosage: .14 MG/KG MILLIGRAM(S) / KILOGRAM  SUBCUTANEOUS
     Route: 058
     Dates: start: 2011, end: 20140606
  2. PENTOSTATIN. [Suspect]
     Active Substance: PENTOSTATIN
     Indication: PRODUCT USED FOR UNKNOWN INDICATION
     Dates: start: 2007, end: 2008

REACTIONS (4)
  - Metastases to liver [None]
  - Meningitis cryptococcal [None]
  - Colon cancer metastatic [None]
  - Basal cell carcinoma [None]

NARRATIVE: CASE EVENT DATE: 201410
